FAERS Safety Report 24285820 (Version 2)
Quarter: 2024Q3

REPORT INFORMATION
  Report Type: Report from Study
  Country: US (occurrence: US)
  Receive Date: 20240905
  Receipt Date: 20240925
  Transmission Date: 20241016
  Serious: Yes (Hospitalization)
  Sender: ROCHE
  Company Number: US-ROCHE-10000054261

PATIENT
  Sex: Female

DRUGS (1)
  1. MYCOPHENOLATE MOFETIL [Suspect]
     Active Substance: MYCOPHENOLATE MOFETIL
     Indication: Polymyositis
     Dosage: 1500 MG IN AM, 1500 MG IN PM
     Route: 065

REACTIONS (3)
  - Fall [Unknown]
  - Injury [Unknown]
  - Off label use [Unknown]
